FAERS Safety Report 8618141 (Version 3)
Quarter: 2013Q2

REPORT INFORMATION
  Report Type: Spontaneous
  Country: US (occurrence: US)
  Receive Date: 20120615
  Receipt Date: 20130606
  Transmission Date: 20140414
  Serious: Yes (Other)
  Sender: FDA-Public Use
  Company Number: US-ASTRAZENECA-2012SE38462

PATIENT
  Age: 48 Year
  Sex: Female

DRUGS (3)
  1. NEXIUM [Suspect]
     Route: 048
  2. VITAMIN E [Concomitant]
     Dosage: DAILY
     Route: 048
  3. PRIMODOS [Concomitant]
     Dosage: DAILY
     Route: 048

REACTIONS (13)
  - Hepatitis C [Unknown]
  - Aphagia [Unknown]
  - Weight decreased [Unknown]
  - Decreased appetite [Unknown]
  - Decreased appetite [Unknown]
  - Dyspepsia [Unknown]
  - Abdominal distension [Unknown]
  - Abdominal pain upper [Unknown]
  - Nausea [Unknown]
  - Abdominal discomfort [Unknown]
  - Vomiting [Unknown]
  - Drug dose omission [Unknown]
  - Drug effect decreased [Unknown]
